FAERS Safety Report 15885557 (Version 1)
Quarter: 2019Q1

REPORT INFORMATION
  Report Type: Spontaneous
  Country: FR (occurrence: FR)
  Receive Date: 20190129
  Receipt Date: 20190129
  Transmission Date: 20190417
  Serious: Yes (Hospitalization)
  Sender: FDA-Public Use
  Company Number: FR-TEVA-2019-FR-1004522

PATIENT
  Age: 64 Year
  Sex: Female

DRUGS (2)
  1. COPAXONE [Suspect]
     Active Substance: GLATIRAMER ACETATE
     Indication: MULTIPLE SCLEROSIS
     Route: 058
     Dates: start: 201707, end: 20170918
  2. COPAXONE 20 MG/ML, POUDRE ET SOLVANT POUR SOLUTION INJECTABLE [Concomitant]
     Indication: MULTIPLE SCLEROSIS
     Dosage: 20 MILLIGRAM DAILY;
     Route: 058
     Dates: start: 2010, end: 201707

REACTIONS (1)
  - Embolia cutis medicamentosa [Not Recovered/Not Resolved]

NARRATIVE: CASE EVENT DATE: 20170905
